FAERS Safety Report 5175635-1 (Version None)
Quarter: 2006Q4

REPORT INFORMATION
  Report Type: 
  Country: None (occurrence: None)
  Receive Date: 20061215
  Receipt Date: 20060718
  Transmission Date: 20070319
  Serious: No
  Sender: FDA-Public Use
  Company Number: US-AMGEN-KDL186788

PATIENT
  Sex: Female

DRUGS (3)
  1. ENBREL [Suspect]
     Indication: RHEUMATOID ARTHRITIS
     Route: 058
     Dates: start: 20060501
  2. SULFASALAZINE [Concomitant]
     Dates: start: 20050501
  3. HYDROXYCHLOROQUINE SULFATE [Concomitant]
     Dates: start: 20050501

REACTIONS (1)
  - HOT FLUSH [None]
